FAERS Safety Report 18578064 (Version 1)
Quarter: 2020Q4

REPORT INFORMATION
  Report Type: Spontaneous
  Country: US (occurrence: US)
  Receive Date: 20201204
  Receipt Date: 20201204
  Transmission Date: 20210114
  Serious: Yes (Other)
  Sender: FDA-Public Use
  Company Number: ALC2020US009161

PATIENT
  Sex: Female

DRUGS (1)
  1. ICAPS AREDS 2 [Suspect]
     Active Substance: MINERALS\VITAMINS
     Indication: PRODUCT USED FOR UNKNOWN INDICATION
     Dosage: UNK
     Route: 065

REACTIONS (4)
  - Foreign body in throat [Recovered/Resolved]
  - Abdominal discomfort [Recovered/Resolved]
  - Choking [Recovered/Resolved]
  - Product size issue [Recovered/Resolved]
